FAERS Safety Report 8572733-7 (Version None)
Quarter: 2012Q3

REPORT INFORMATION
  Report Type: 
  Country: None (occurrence: None)
  Receive Date: 20120806
  Receipt Date: 20120731
  Transmission Date: 20120928
  Serious: Yes (Death)
  Sender: FDA-Public Use
  Company Number: ZA-PFIZER INC-2012186407

PATIENT
  Age: 44 Year
  Sex: Female

DRUGS (2)
  1. VFEND [Suspect]
     Indication: CANDIDIASIS
     Dosage: UNK
     Route: 042
  2. VFEND [Suspect]
     Indication: ASPERGILLOSIS

REACTIONS (3)
  - MYELODYSPLASTIC SYNDROME [None]
  - DEAFNESS [None]
  - RENAL IMPAIRMENT [None]
